FAERS Safety Report 9984298 (Version 1)
Quarter: 2014Q1

REPORT INFORMATION
  Report Type: Spontaneous
  Country: US (occurrence: US)
  Receive Date: 20140307
  Receipt Date: 20140307
  Transmission Date: 20141002
  Serious: No
  Sender: FDA-Public Use
  Company Number: US-ALEXION-A201400053

PATIENT
  Sex: 0

DRUGS (2)
  1. SOLIRIS 300MG [Suspect]
     Indication: THROMBOTIC MICROANGIOPATHY
     Dosage: UNK
     Route: 042
  2. SOLIRIS 300MG [Suspect]
     Indication: OFF LABEL USE

REACTIONS (3)
  - Off label use [Recovered/Resolved]
  - Incorrect dose administered [Recovered/Resolved]
  - Inappropriate schedule of drug administration [Recovered/Resolved]
